FAERS Safety Report 16972603 (Version 2)
Quarter: 2020Q1

REPORT INFORMATION
  Report Type: Report from Study
  Country: KR (occurrence: KR)
  Receive Date: 20191030
  Receipt Date: 20200129
  Transmission Date: 20200409
  Serious: Yes (Hospitalization)
  Sender: FDA-Public Use
  Company Number: KR-ROCHE-2455369

PATIENT
  Age: 77 Year
  Sex: Male
  Weight: 49.6 kg

DRUGS (2)
  1. HM 95573 [Suspect]
     Active Substance: INVESTIGATIONAL PRODUCT
     Indication: MALIGNANT MELANOMA
     Dosage: ON 09/OCT/2019, HE RECEIVED LAST DOSE OF THE HM95573 (RAF KINASE INHIBITOR) PRIOR TO SAE ONSET.
     Route: 048
     Dates: start: 20190527
  2. COBIMETINIB. [Suspect]
     Active Substance: COBIMETINIB
     Indication: MALIGNANT MELANOMA
     Dosage: ON 07/OCT/2019, HE RECEIVED LAST DOSE OF THE COBIMETINIB PRIOR TO SAE ONSET.
     Route: 048
     Dates: start: 20190527

REACTIONS (1)
  - Hyperglycaemia [Recovered/Resolved]

NARRATIVE: CASE EVENT DATE: 20191011
